FAERS Safety Report 20707447 (Version 7)
Quarter: 2023Q1

REPORT INFORMATION
  Report Type: Spontaneous
  Country: US (occurrence: US)
  Receive Date: 20220413
  Receipt Date: 20230213
  Transmission Date: 20230417
  Serious: No
  Sender: FDA-Public Use
  Company Number: US-PFIZER INC-202200074806

PATIENT
  Age: 48 Year
  Sex: Female
  Weight: 56.689 kg

DRUGS (2)
  1. IBRANCE [Suspect]
     Active Substance: PALBOCICLIB
     Indication: Breast cancer metastatic
     Dosage: 125 MG, CYCLIC (ONCE DAILY ON DAYS 1-21 OF A 28 DAY CYCLE)
     Dates: start: 202111
  2. LETROZOLE [Concomitant]
     Active Substance: LETROZOLE
     Dosage: UNK
     Dates: start: 202110, end: 202211

REACTIONS (13)
  - Neoplasm progression [Not Recovered/Not Resolved]
  - White blood cell count decreased [Recovered/Resolved]
  - Rash [Recovered/Resolved]
  - Oropharyngeal pain [Unknown]
  - Madarosis [Not Recovered/Not Resolved]
  - Alopecia [Not Recovered/Not Resolved]
  - COVID-19 [Recovered/Resolved]
  - Sciatica [Not Recovered/Not Resolved]
  - Back pain [Recovered/Resolved]
  - Limb discomfort [Recovered/Resolved]
  - Insomnia [Unknown]
  - Osteopenia [Unknown]
  - Arthritis [Unknown]

NARRATIVE: CASE EVENT DATE: 20211201
